FAERS Safety Report 9720784 (Version 1)
Quarter: 2013Q4

REPORT INFORMATION
  Report Type: Spontaneous
  Country: NO (occurrence: NO)
  Receive Date: 20131129
  Receipt Date: 20131129
  Transmission Date: 20140711
  Serious: Yes (Hospitalization)
  Sender: FDA-Public Use
  Company Number: NO-AMGEN-NORSP2013083661

PATIENT
  Age: 69 Year
  Sex: Female

DRUGS (12)
  1. ENBREL [Suspect]
     Indication: RHEUMATOID ARTHRITIS
     Dosage: 25 MG, 2X/WEEK. TREATMENT TEMPORARILY WITHDRAWN FROM MAR2013 TO MAY2013
     Route: 058
     Dates: start: 20040616
  2. ENBREL [Suspect]
     Dosage: UNK
     Route: 065
  3. METHOTREXATE SODIUM [Suspect]
     Indication: RHEUMATOID ARTHRITIS
     Dosage: 20 MG, WEEKLY. TREATMENT TEMPORARILY WITHDRAWN FROM MAR2013 TO MAY2013
     Route: 048
     Dates: start: 20000620
  4. METHOTREXATE SODIUM [Suspect]
     Dosage: UNK
     Route: 065
  5. FOLSYRE NAF [Concomitant]
     Indication: RHEUMATOID ARTHRITIS
     Dosage: 1 MG DAILY EXCEPT THURSDAY AND FRIDAY
     Route: 048
  6. TENORMIN [Concomitant]
     Dosage: 50 MG, 2X/DAY
     Route: 048
  7. TRAMADOL [Concomitant]
     Dosage: 50-100 MG UP TO THREE TIMES DAILY
     Route: 048
  8. MELOXICAM [Concomitant]
     Dosage: 15 MG, AS NECESSARY
     Route: 048
  9. ACTIVELLE [Concomitant]
     Dosage: 0.5 DF, 1X/DAY
     Route: 048
  10. PANODIL [Concomitant]
     Dosage: 1 G UP TO THREE TIMES DAILY
     Route: 048
  11. DIURAL                             /00032601/ [Concomitant]
     Dosage: 40 MG, AS NECESSARY
     Route: 048
  12. CARDURAN CR [Concomitant]
     Dosage: 8 MG, 1X/DAY
     Route: 048

REACTIONS (2)
  - Bursitis [Recovered/Resolved]
  - Erysipelas [Recovered/Resolved]
